FAERS Safety Report 20414158 (Version 1)
Quarter: 2022Q1

REPORT INFORMATION
  Report Type: Spontaneous
  Country: US (occurrence: None)
  Receive Date: 20220201
  Receipt Date: 20220201
  Transmission Date: 20220423
  Serious: No
  Sender: FDA-Public Use
  Company Number: 2022A021887

PATIENT
  Sex: Female
  Weight: 49.9 kg

DRUGS (1)
  1. SYMBICORT [Suspect]
     Active Substance: BUDESONIDE\FORMOTEROL FUMARATE DIHYDRATE
     Indication: Chronic obstructive pulmonary disease
     Dosage: 160/4.5 MCG, 2 PUFFS, TWO TIMES A DAY
     Route: 055

REACTIONS (6)
  - Lung disorder [Unknown]
  - Dyspnoea [Unknown]
  - Muscle strain [Unknown]
  - Chronic obstructive pulmonary disease [Unknown]
  - Dysphonia [Unknown]
  - Device use issue [Unknown]
